FAERS Safety Report 8572011-6 (Version None)
Quarter: 2012Q3

REPORT INFORMATION
  Report Type: 
  Country: None (occurrence: None)
  Receive Date: 20120806
  Receipt Date: 20120705
  Transmission Date: 20120928
  Serious: No
  Sender: FDA-Public Use
  Company Number: US-009507513-1207USA002420

PATIENT

DRUGS (4)
  1. PEGASYS [Concomitant]
     Dosage: UNK
     Dates: start: 20111201
  2. VICTRELIS [Suspect]
     Dosage: UNK
     Dates: start: 20111229
  3. RIBASPHERE [Concomitant]
     Dosage: UNK
     Dates: start: 20111201
  4. INSULIN [Concomitant]

REACTIONS (1)
  - BLOOD GLUCOSE INCREASED [None]
